FAERS Safety Report 12212314 (Version 1)
Quarter: 2016Q1

REPORT INFORMATION
  Report Type: Other
  Country: US (occurrence: US)
  Receive Date: 20160325
  Receipt Date: 20160325
  Transmission Date: 20160526
  Serious: No
  Sender: FDA-Public Use
  Company Number: US-DEP_02555_2015

PATIENT
  Sex: Male
  Weight: 76 kg

DRUGS (5)
  1. GRALISE [Suspect]
     Active Substance: GABAPENTIN
     Indication: OFF LABEL USE
     Route: 048
     Dates: start: 2014, end: 2014
  2. GRALISE [Suspect]
     Active Substance: GABAPENTIN
     Dosage: TAKEN WITH FOOD AROUND 19:00 OR 20:00 RATHER THAN WITH EVENING MEAL
     Route: 048
     Dates: start: 201501
  3. UNSPECIFIED BLOOD PRESSURE MEDICATIONS [Concomitant]
     Indication: HYPERTENSION
     Dosage: DF
  4. GRALISE [Suspect]
     Active Substance: GABAPENTIN
     Route: 048
     Dates: start: 2014, end: 201501
  5. GRALISE [Suspect]
     Active Substance: GABAPENTIN
     Indication: NEUROPATHY PERIPHERAL
     Route: 048
     Dates: start: 201501, end: 201501

REACTIONS (3)
  - Dizziness [Recovered/Resolved]
  - Drug ineffective for unapproved indication [Not Recovered/Not Resolved]
  - Inappropriate schedule of drug administration [Not Recovered/Not Resolved]

NARRATIVE: CASE EVENT DATE: 2014
